FAERS Safety Report 8174949 (Version 2)
Quarter: 2012Q4

REPORT INFORMATION
  Report Type: Spontaneous
  Country: None (occurrence: None)
  Receive Date: 20110927
  Receipt Date: 20120821
  Transmission Date: 20130627
  Serious: Yes (Hospitalization)
  Sender: FDA-Public Use
  Company Number: AUR-APL-2011-05084

PATIENT
  Age: 33 Year
  Sex: Female

DRUGS (2)
  1. CEFAZOLIN [Suspect]
     Indication: PRODUCT USED FOR UNKNOWN INDICATION
     Dosage: (1 GM)
     Dates: start: 20110714, end: 20110714
  2. OXYTOCIN [Concomitant]

REACTIONS (3)
  - ANAPHYLACTIC REACTION [None]
  - TACHYCARDIA [None]
  - URTICARIA [None]
